FAERS Safety Report 9209038 (Version 2)
Quarter: 2013Q3

REPORT INFORMATION
  Report Type: Spontaneous
  Country: US (occurrence: None)
  Receive Date: 20120817
  Receipt Date: 20130815
  Transmission Date: 20140515
  Serious: Yes (Hospitalization, Other)
  Sender: FDA-Public Use
  Company Number: ADR-2012-01121

PATIENT
  Sex: Female

DRUGS (2)
  1. GABLOFEN [Suspect]
     Indication: MUSCLE SPASTICITY
  2. GABLOFEN [Suspect]
     Indication: SPINAL CORD INJURY

REACTIONS (5)
  - Muscle spasms [None]
  - Drug withdrawal syndrome [None]
  - Agitation [None]
  - Muscle rigidity [None]
  - Pruritus [None]
